FAERS Safety Report 5885143-8 (Version None)
Quarter: 2008Q3

REPORT INFORMATION
  Report Type: 
  Country: None (occurrence: None)
  Receive Date: 20080916
  Receipt Date: 20080910
  Transmission Date: 20090109
  Serious: Yes (Death, Life-Threatening, Disabling, Other)
  Sender: FDA-Public Use
  Company Number: US-MERCK-0809USA01520

PATIENT
  Age: 40 Year
  Sex: Male

DRUGS (5)
  1. ISENTRESS [Suspect]
     Route: 048
     Dates: start: 20080424
  2. TRUVADA [Concomitant]
     Route: 065
  3. SUSTIVA [Concomitant]
     Route: 065
  4. BACTRIM [Concomitant]
     Route: 065
  5. LANTUS [Concomitant]
     Route: 065

REACTIONS (1)
  - BONE MARROW FAILURE [None]
